FAERS Safety Report 7250580-6 (Version None)
Quarter: 2011Q1

REPORT INFORMATION
  Report Type: 
  Country: None (occurrence: None)
  Receive Date: 20110128
  Receipt Date: 20110120
  Transmission Date: 20110831
  Serious: Yes (Hospitalization)
  Sender: FDA-Public Use
  Company Number: TN-JNJFOC-20110107042

PATIENT
  Age: 42 Year
  Sex: Female

DRUGS (3)
  1. HALOPERIDOL [Suspect]
     Indication: DEPRESSION
     Route: 065
  2. CLOMIPRAMINE HCL [Suspect]
     Route: 065
  3. CLOMIPRAMINE HCL [Suspect]
     Indication: DEPRESSION
     Route: 065

REACTIONS (3)
  - HYPERPROLACTINAEMIA [None]
  - DEPRESSION [None]
  - PITUITARY TUMOUR BENIGN [None]
